FAERS Safety Report 9329854 (Version 1)
Quarter: 2013Q2

REPORT INFORMATION
  Report Type: Spontaneous
  Country: US (occurrence: US)
  Receive Date: 20130604
  Receipt Date: 20130604
  Transmission Date: 20140414
  Serious: No
  Sender: FDA-Public Use
  Company Number: US-SANOFI-AVENTIS-2013SA004450

PATIENT
  Age: 68 Year
  Sex: Female

DRUGS (5)
  1. LANTUS SOLOSTAR [Suspect]
     Dosage: DOSE:30 UNIT(S)
     Route: 051
  2. SOLOSTAR [Suspect]
  3. APIDRA [Suspect]
  4. HUMALOG [Concomitant]
     Dosage: 70/30
  5. NOVOLOG [Concomitant]
     Dosage: 70/30

REACTIONS (3)
  - Injection site bruising [Unknown]
  - Blood pressure increased [Unknown]
  - Feeling abnormal [Unknown]
